FAERS Safety Report 4491305-7 (Version None)
Quarter: 2004Q4

REPORT INFORMATION
  Report Type: 
  Country: None (occurrence: None)
  Receive Date: 20041101
  Receipt Date: 20041004
  Transmission Date: 20050328
  Serious: Yes (Hospitalization)
  Sender: FDA-Public Use
  Company Number: GBS041015805

PATIENT
  Age: 54 Year
  Sex: Female

DRUGS (7)
  1. GEMCITABINE HYDROCHLORIDE-IV (GEMCITABINE) [Suspect]
     Indication: PANCREATIC CARCINOMA METASTATIC
     Dates: start: 20030501, end: 20040801
  2. MORPHINE SULFATE [Concomitant]
  3. DEXAMETHASONE [Concomitant]
  4. DOXEPIN HCL [Concomitant]
  5. CYCLIZINE [Concomitant]
  6. HALOPERIDOL [Concomitant]
  7. LANSOPRAZOLE [Concomitant]

REACTIONS (6)
  - BRAIN OEDEMA [None]
  - C-REACTIVE PROTEIN INCREASED [None]
  - CONFUSIONAL STATE [None]
  - DYSPHAGIA [None]
  - HEADACHE [None]
  - NUCLEAR MAGNETIC RESONANCE IMAGING BRAIN ABNORMAL [None]
